FAERS Safety Report 6177864-7 (Version None)
Quarter: 2009Q2

REPORT INFORMATION
  Report Type: 
  Country: None (occurrence: None)
  Receive Date: 20090501
  Receipt Date: 20090501
  Transmission Date: 20091009
  Serious: No
  Sender: FDA-Public Use
  Company Number: None

PATIENT
  Age: 65 Year
  Sex: Male

DRUGS (1)
  1. NEOMYCIN/POLYMYXIN B [Suspect]
     Indication: WOUND
     Dosage: 1 PRN TOP
     Route: 061
     Dates: start: 20090201, end: 20090204

REACTIONS (2)
  - PRURITUS [None]
  - RASH [None]
